FAERS Safety Report 15061058 (Version 1)
Quarter: 2018Q2

REPORT INFORMATION
  Report Type: Spontaneous
  Country: US (occurrence: US)
  Receive Date: 20180605
  Receipt Date: 20180605
  Transmission Date: 20180711
  Serious: Yes (Hospitalization)
  Sender: FDA-Public Use
  Company Number: None

PATIENT
  Age: 25 Year
  Sex: Male
  Weight: 90.7 kg

DRUGS (3)
  1. DIVALPROEX ER 1500 MG PO HS [Concomitant]
     Dates: start: 20180427, end: 20180502
  2. CLOZAPINE. [Suspect]
     Active Substance: CLOZAPINE
     Indication: SCHIZOPHRENIA
     Dosage: AT BEDTIME
     Route: 048
     Dates: start: 20180503, end: 20180510
  3. CLOZAPINE. [Suspect]
     Active Substance: CLOZAPINE
     Indication: SCHIZOPHRENIA
     Dosage: AT BEDTIME
     Route: 048
     Dates: start: 20180430, end: 20180508

REACTIONS (6)
  - Arthralgia [None]
  - Myalgia [None]
  - Bone pain [None]
  - Fatigue [None]
  - Myocarditis [None]
  - Chest discomfort [None]

NARRATIVE: CASE EVENT DATE: 20180511
